FAERS Safety Report 8812123 (Version 2)
Quarter: 2012Q4

REPORT INFORMATION
  Report Type: 
  Country: BR (occurrence: BR)
  Receive Date: 20120927
  Receipt Date: 20121009
  Transmission Date: 20130627
  Serious: Yes (Hospitalization, Other)
  Sender: FDA-Public Use
  Company Number: BR-ELI_LILLY_AND_COMPANY-BR201209004752

PATIENT
  Age: 57 None
  Sex: Male
  Weight: 60 kg

DRUGS (8)
  1. HUMULIN NPH [Suspect]
     Indication: DIABETES MELLITUS
     Dosage: 30 IU, each morning
     Route: 058
     Dates: start: 2010
  2. HUMULIN NPH [Suspect]
     Dosage: 14 IU, qd
     Route: 058
     Dates: start: 2010
  3. GLIFAGE [Concomitant]
     Indication: DIABETES MELLITUS
     Dosage: UNK, unknown
     Route: 065
  4. VASTAREL [Concomitant]
     Indication: CARDIAC DISORDER
     Dosage: UNK, unknown
     Route: 065
  5. AAS [Concomitant]
     Indication: CARDIAC DISORDER
     Dosage: UNK, unknown
     Route: 065
  6. CLOPIDOGREL [Concomitant]
     Indication: CARDIAC DISORDER
     Dosage: UNK, unknown
     Route: 065
  7. PANTOPRAZOL [Concomitant]
     Indication: CARDIAC DISORDER
     Dosage: UNK, unknown
     Route: 065
  8. CLOXAZOLAM [Concomitant]
     Indication: RELAXATION THERAPY

REACTIONS (4)
  - Infarction [Unknown]
  - Hospitalisation [Unknown]
  - Chest pain [Not Recovered/Not Resolved]
  - Underdose [Unknown]
